FAERS Safety Report 12158417 (Version 1)
Quarter: 2016Q1

REPORT INFORMATION
  Report Type: Spontaneous
  Country: US (occurrence: US)
  Receive Date: 20160308
  Receipt Date: 20160308
  Transmission Date: 20160526
  Serious: No
  Sender: FDA-Public Use
  Company Number: US-JNJFOC-20150205533

PATIENT
  Age: 76 Year
  Sex: Male

DRUGS (1)
  1. IMBRUVICA [Suspect]
     Active Substance: IBRUTINIB
     Indication: CHRONIC LYMPHOCYTIC LEUKAEMIA
     Dosage: 3 PILLS A DAY
     Route: 048
     Dates: start: 20140125

REACTIONS (2)
  - Blood sodium abnormal [Recovered/Resolved]
  - Red blood cell count abnormal [Recovered/Resolved]

NARRATIVE: CASE EVENT DATE: 201501
